FAERS Safety Report 16281727 (Version 1)
Quarter: 2019Q2

REPORT INFORMATION
  Report Type: Spontaneous
  Country: US (occurrence: US)
  Receive Date: 20190507
  Receipt Date: 20190507
  Transmission Date: 20190711
  Serious: Yes (Other)
  Sender: FDA-Public Use
  Company Number: US-JUBILANT CADISTA PHARMACEUTICALS-2019JUB00170

PATIENT
  Age: 72 Year
  Sex: Female

DRUGS (1)
  1. CARBAMAZEPINE. [Suspect]
     Active Substance: CARBAMAZEPINE
     Indication: NEUROPATHY PERIPHERAL
     Route: 065

REACTIONS (4)
  - Pancytopenia [Unknown]
  - Histiocytosis [Unknown]
  - Plasma cell myeloma [Unknown]
  - Hypogammaglobulinaemia [Unknown]
